FAERS Safety Report 20755986 (Version 2)
Quarter: 2024Q3

REPORT INFORMATION
  Report Type: Spontaneous
  Country: CA (occurrence: CA)
  Receive Date: 20220427
  Receipt Date: 20240927
  Transmission Date: 20241017
  Serious: Yes (Other)
  Sender: PFIZER
  Company Number: CA-PFIZER INC-202200620270

PATIENT
  Age: 37 Year
  Sex: Female

DRUGS (4)
  1. ADCETRIS [Suspect]
     Active Substance: BRENTUXIMAB VEDOTIN
     Indication: Anaplastic large cell lymphoma T- and null-cell types
     Dosage: UNK UNK, CYCLIC
  2. DOXORUBICIN HYDROCHLORIDE [Suspect]
     Active Substance: DOXORUBICIN HYDROCHLORIDE
     Indication: Anaplastic large cell lymphoma T- and null-cell types
     Dosage: UNK UNK, CYCLIC
  3. CYCLOPHOSPHAMIDE [Suspect]
     Active Substance: CYCLOPHOSPHAMIDE
     Indication: Anaplastic large cell lymphoma T- and null-cell types
     Dosage: UNK UNK, CYCLIC
  4. PREDNISONE [Suspect]
     Active Substance: PREDNISONE
     Indication: Anaplastic large cell lymphoma T- and null-cell types
     Dosage: UNK UNK, CYCLIC

REACTIONS (8)
  - Cytopenia [Not Recovered/Not Resolved]
  - Encephalopathy [Recovered/Resolved]
  - Tumour lysis syndrome [Unknown]
  - Splenomegaly [Recovering/Resolving]
  - Disease recurrence [Recovering/Resolving]
  - Blood lactate dehydrogenase increased [Unknown]
  - Blood uric acid increased [Recovered/Resolved]
  - Blood calcium increased [Unknown]
